FAERS Safety Report 7352491-4 (Version None)
Quarter: 2011Q1

REPORT INFORMATION
  Report Type: 
  Country: None (occurrence: None)
  Receive Date: 20110304
  Receipt Date: 20110219
  Transmission Date: 20110831
  Serious: Yes (Life-Threatening, Hospitalization)
  Sender: FDA-Public Use
  Company Number: IPC201102-000131

PATIENT
  Age: 46 Year
  Sex: Female

DRUGS (1)
  1. HYDROCHLOROTHIAZIDE TAB [Suspect]
     Indication: HYPERTENSION
     Dosage: 25 MG, ORAL
     Route: 048

REACTIONS (5)
  - PULMONARY OEDEMA [None]
  - HAEMATOCRIT INCREASED [None]
  - SHOCK [None]
  - HAEMOGLOBIN INCREASED [None]
  - QRS AXIS ABNORMAL [None]
